FAERS Safety Report 6918990-1 (Version None)
Quarter: 2010Q3

REPORT INFORMATION
  Report Type: 
  Country: None (occurrence: None)
  Receive Date: 20100811
  Receipt Date: 20100802
  Transmission Date: 20110219
  Serious: Yes (Other)
  Sender: FDA-Public Use
  Company Number: SE-BAXTER-2010BH015904

PATIENT
  Sex: Male

DRUGS (34)
  1. GAMMAGARD LIQUID [Suspect]
     Indication: WEGENER'S GRANULOMATOSIS
     Route: 042
  2. GAMMAGARD LIQUID [Suspect]
     Indication: OFF LABEL USE
     Route: 042
  3. GAMMAGARD LIQUID [Suspect]
     Route: 042
  4. GAMMAGARD LIQUID [Suspect]
     Route: 042
  5. GAMMAGARD LIQUID [Suspect]
     Route: 042
  6. GAMMAGARD LIQUID [Suspect]
     Route: 042
  7. GAMMAGARD LIQUID [Suspect]
     Route: 042
  8. GAMMAGARD LIQUID [Suspect]
     Route: 042
  9. GAMMAGARD LIQUID [Suspect]
     Route: 042
  10. GAMMAGARD LIQUID [Suspect]
     Route: 042
  11. GAMMAGARD LIQUID [Suspect]
     Route: 042
  12. GAMMAGARD LIQUID [Suspect]
     Route: 042
  13. GAMMAGARD LIQUID [Suspect]
     Route: 042
  14. GAMMAGARD LIQUID [Suspect]
     Route: 042
  15. GAMMAGARD LIQUID [Suspect]
     Route: 042
  16. GAMMAGARD LIQUID [Suspect]
     Route: 042
  17. GAMMAGARD LIQUID [Suspect]
     Route: 042
  18. GAMMAGARD LIQUID [Suspect]
     Route: 042
  19. GAMMAGARD LIQUID [Suspect]
     Route: 042
  20. GAMMAGARD LIQUID [Suspect]
     Route: 042
  21. GAMMAGARD LIQUID [Suspect]
     Route: 042
  22. GAMMAGARD LIQUID [Suspect]
     Route: 042
  23. GAMMAGARD LIQUID [Suspect]
     Route: 042
  24. GAMMAGARD LIQUID [Suspect]
     Route: 042
  25. GAMMAGARD LIQUID [Suspect]
     Route: 042
  26. GAMMAGARD LIQUID [Suspect]
     Route: 042
  27. GAMMAGARD LIQUID [Suspect]
     Route: 042
  28. GAMMAGARD LIQUID [Suspect]
     Route: 042
  29. GAMMAGARD LIQUID [Suspect]
     Route: 042
  30. GAMMAGARD LIQUID [Suspect]
     Route: 042
  31. GAMMAGARD LIQUID [Suspect]
     Route: 042
  32. GAMMAGARD LIQUID [Suspect]
     Route: 042
  33. GAMMAGARD LIQUID [Suspect]
     Route: 042
  34. GAMMAGARD LIQUID [Suspect]
     Route: 042

REACTIONS (2)
  - ANTI-HBC IGG ANTIBODY POSITIVE [None]
  - ANTI-HBS ANTIBODY POSITIVE [None]
